FAERS Safety Report 25129737 (Version 5)
Quarter: 2025Q2

REPORT INFORMATION
  Report Type: Spontaneous
  Country: IL (occurrence: IL)
  Receive Date: 20250327
  Receipt Date: 20250530
  Transmission Date: 20250716
  Serious: No
  Sender: PFIZER
  Company Number: IL-PFIZER INC-PV202500015262

PATIENT
  Age: 13 Year
  Sex: Male

DRUGS (1)
  1. NGENLA [Suspect]
     Active Substance: SOMATROGON-GHLA
     Dosage: 30 MG, WEEKLY
     Route: 058
     Dates: start: 20250123

REACTIONS (1)
  - Injection site pain [Recovering/Resolving]
